FAERS Safety Report 8884954 (Version 1)
Quarter: 2012Q4

REPORT INFORMATION
  Report Type: 
  Country: US (occurrence: US)
  Receive Date: 20121102
  Receipt Date: 20121102
  Transmission Date: 20130627
  Serious: No
  Sender: FDA-Public Use
  Company Number: US-BAYER-2012-114811

PATIENT
  Age: 22 Year
  Sex: Female

DRUGS (2)
  1. MIRENA [Suspect]
     Indication: CONTRACEPTION
     Dosage: 20 mcg/24hr, CONT
     Route: 015
     Dates: start: 201206
  2. MIRENA [Suspect]
     Indication: PREMENSTRUAL DYSPHORIC DISORDER

REACTIONS (4)
  - Nipple pain [None]
  - Alopecia [None]
  - Acne [None]
  - Libido decreased [None]
